FAERS Safety Report 9295043 (Version 1)
Quarter: 2013Q2

REPORT INFORMATION
  Report Type: Spontaneous
  Country: BR (occurrence: BR)
  Receive Date: 20130517
  Receipt Date: 20130517
  Transmission Date: 20140414
  Serious: Yes (Other)
  Sender: FDA-Public Use
  Company Number: BR-PFIZER INC-2013136111

PATIENT
  Age: 60 Year
  Sex: Female
  Weight: 50 kg

DRUGS (2)
  1. DETRUSITOL [Suspect]
     Indication: HYPERTONIC BLADDER
     Dosage: 1 MG, UNK
     Dates: start: 2005, end: 2006
  2. AMIODARONE [Concomitant]
     Dosage: UNK

REACTIONS (6)
  - Bladder disorder [Unknown]
  - Thyroid disorder [Unknown]
  - Drug ineffective [Unknown]
  - Pollakiuria [Unknown]
  - Cystitis [Unknown]
  - Malnutrition [Unknown]
